FAERS Safety Report 14482172 (Version 1)
Quarter: 2018Q1

REPORT INFORMATION
  Report Type: Report from Study
  Country: US (occurrence: US)
  Receive Date: 20180202
  Receipt Date: 20180202
  Transmission Date: 20180509
  Serious: Yes (Hospitalization)
  Sender: FDA-Public Use
  Company Number: US-ACTELION-A-NJ2018-166893

PATIENT
  Age: 63 Year
  Sex: Female

DRUGS (28)
  1. BREO ELLIPTA [Concomitant]
     Active Substance: FLUTICASONE FUROATE\VILANTEROL TRIFENATATE
  2. ESZOPICLONE. [Concomitant]
     Active Substance: ESZOPICLONE
  3. POTASSIUM CHLORIDE. [Concomitant]
     Active Substance: POTASSIUM CHLORIDE
  4. OMEPRAZOLE. [Concomitant]
     Active Substance: OMEPRAZOLE
  5. BUPROPION. [Concomitant]
     Active Substance: BUPROPION
  6. PAROXETINE. [Concomitant]
     Active Substance: PAROXETINE
  7. MAGNESIUM OXIDE. [Concomitant]
     Active Substance: MAGNESIUM OXIDE
  8. ESTRADIOL. [Concomitant]
     Active Substance: ESTRADIOL
  9. SPIRONOLACTONE. [Concomitant]
     Active Substance: SPIRONOLACTONE
  10. FLUOXETINE [Concomitant]
     Active Substance: FLUOXETINE HYDROCHLORIDE
  11. LAMOTRIGINE. [Concomitant]
     Active Substance: LAMOTRIGINE
  12. METHOCARBAMOL. [Concomitant]
     Active Substance: METHOCARBAMOL
  13. NITROFURANTOIN. [Concomitant]
     Active Substance: NITROFURANTOIN
  14. OXYCODONE [Concomitant]
     Active Substance: OXYCODONE
  15. WARFARIN [Concomitant]
     Active Substance: WARFARIN
  16. TRAMADOL. [Concomitant]
     Active Substance: TRAMADOL
  17. FERROUS SULFATE. [Concomitant]
     Active Substance: FERROUS SULFATE
  18. OPSUMIT [Suspect]
     Active Substance: MACITENTAN
     Indication: PULMONARY ARTERIAL HYPERTENSION
     Dosage: 10 MG, QD
     Route: 048
  19. PROVENTIL [Concomitant]
     Active Substance: ALBUTEROL
  20. HYDROCHLOROTHIAZIDE. [Concomitant]
     Active Substance: HYDROCHLOROTHIAZIDE
  21. LORAZEPAM. [Concomitant]
     Active Substance: LORAZEPAM
  22. VITAMIN D [Concomitant]
     Active Substance: CHOLECALCIFEROL
  23. GABAPENTIN. [Concomitant]
     Active Substance: GABAPENTIN
  24. ZOLPIDEM [Concomitant]
     Active Substance: ZOLPIDEM\ZOLPIDEM TARTRATE
  25. INCRUSE ELLIPTA [Concomitant]
     Active Substance: UMECLIDINIUM BROMIDE
  26. SILDENAFIL. [Concomitant]
     Active Substance: SILDENAFIL
  27. TORSEMIDE. [Concomitant]
     Active Substance: TORSEMIDE
  28. QUETIAPINE. [Concomitant]
     Active Substance: QUETIAPINE

REACTIONS (2)
  - Neoplasm [Not Recovered/Not Resolved]
  - Gallbladder disorder [Not Recovered/Not Resolved]

NARRATIVE: CASE EVENT DATE: 20180114
